FAERS Safety Report 6458681-7 (Version None)
Quarter: 2009Q4

REPORT INFORMATION
  Report Type: 
  Country: None (occurrence: None)
  Receive Date: 20091120
  Receipt Date: 20091106
  Transmission Date: 20100525
  Serious: Yes (Other)
  Sender: FDA-Public Use
  Company Number: 1000010158

PATIENT
  Age: 54 Year
  Sex: Female

DRUGS (8)
  1. ESCITALOPRAM [Suspect]
     Dosage: 20 MG (20 MG, 1IN 1 D),ORAL
     Route: 048
  2. LORAZEPAM [Suspect]
     Dosage: ORAL
     Route: 048
  3. ZOPICLONE [Suspect]
     Dosage: 7.5 MG  (7.5 MG, 1IN 1 D), ORAL
     Route: 048
  4. ABILIFY [Concomitant]
  5. NOCTAMIDE [Concomitant]
  6. SERESTA [Concomitant]
  7. ZYPREXA [Concomitant]
  8. SERTRALINE HCL [Concomitant]

REACTIONS (1)
  - DRUG DEPENDENCE [None]
